FAERS Safety Report 7385706-7 (Version None)
Quarter: 2011Q1

REPORT INFORMATION
  Report Type: 
  Country: None (occurrence: None)
  Receive Date: 20110331
  Receipt Date: 20110328
  Transmission Date: 20110831
  Serious: Yes (Hospitalization)
  Sender: FDA-Public Use
  Company Number: AU-AMGEN-AUSSP2011014625

PATIENT
  Age: 32 Year
  Sex: Female
  Weight: 62 kg

DRUGS (3)
  1. NEUPOGEN [Suspect]
     Dosage: 300 A?G, QD
     Route: 058
     Dates: start: 20090901
  2. NEUPOGEN [Suspect]
     Indication: CYCLIC NEUTROPENIA
     Dosage: 150 A?G, QOD
     Route: 058
     Dates: start: 20010901
  3. PREDNISONE [Concomitant]
     Route: 048

REACTIONS (6)
  - HEADACHE [None]
  - RASH GENERALISED [None]
  - PYREXIA [None]
  - THERAPEUTIC RESPONSE DECREASED [None]
  - MALAISE [None]
  - ARTHRALGIA [None]
